FAERS Safety Report 7029334-1 (Version None)
Quarter: 2010Q4

REPORT INFORMATION
  Report Type: 
  Country: None (occurrence: None)
  Receive Date: 20101005
  Receipt Date: 20100923
  Transmission Date: 20110411
  Serious: Yes (Hospitalization)
  Sender: FDA-Public Use
  Company Number: PHHY2010BR63320

PATIENT
  Sex: Male

DRUGS (1)
  1. FORASEQ [Suspect]
     Dosage: 12/400 MCG

REACTIONS (2)
  - DYSPNOEA [None]
  - LUNG DISORDER [None]
